FAERS Safety Report 25224984 (Version 2)
Quarter: 2025Q2

REPORT INFORMATION
  Report Type: Report from Study
  Country: IT (occurrence: IT)
  Receive Date: 20250422
  Receipt Date: 20250618
  Transmission Date: 20250717
  Serious: Yes (Death, Other)
  Sender: AUROBINDO
  Company Number: IT-AUROBINDO-AUR-APL-2025-020120

PATIENT

DRUGS (2)
  1. APIXABAN [Suspect]
     Active Substance: APIXABAN
     Indication: Thrombosis prophylaxis
     Dosage: 2.5 MILLIGRAM, TWO TIMES A DAY
     Route: 048
  2. APIXABAN [Suspect]
     Active Substance: APIXABAN
     Route: 048

REACTIONS (4)
  - Pulmonary embolism [Fatal]
  - Cardiac failure [Fatal]
  - Drug ineffective [Fatal]
  - Gastrointestinal haemorrhage [Unknown]
